FAERS Safety Report 5170483-0 (Version None)
Quarter: 2006Q4

REPORT INFORMATION
  Report Type: 
  Country: None (occurrence: None)
  Receive Date: 20061204
  Receipt Date: 20061122
  Transmission Date: 20070319
  Serious: Yes (Other)
  Sender: FDA-Public Use
  Company Number: 2006144406

PATIENT
  Sex: Male

DRUGS (1)
  1. VIAGRA [Suspect]
     Indication: ERECTILE DYSFUNCTION
     Dosage: 50 MG, 1 IN 1 WK, ORAL
     Route: 048
     Dates: start: 20050101

REACTIONS (2)
  - INSULIN-REQUIRING TYPE II DIABETES MELLITUS [None]
  - NASAL CONGESTION [None]
